FAERS Safety Report 7433151-8 (Version None)
Quarter: 2011Q2

REPORT INFORMATION
  Report Type: 
  Country: None (occurrence: None)
  Receive Date: 20110422
  Receipt Date: 20110412
  Transmission Date: 20111010
  Serious: Yes (Death)
  Sender: FDA-Public Use
  Company Number: US-CELGENEUS-163-21880-11041543

PATIENT
  Sex: Male

DRUGS (10)
  1. REVLIMID [Suspect]
     Dosage: 5 MILLIGRAM
     Route: 048
     Dates: start: 20110301, end: 20110405
  2. VITAMIN D [Concomitant]
     Dosage: 1000 UNIT
     Route: 048
  3. MS CONTIN [Concomitant]
     Dosage: 15 MILLIGRAM
     Route: 048
  4. DEXAMETHASONE [Concomitant]
     Dosage: 1 MILLIGRAM
     Route: 048
  5. VITAMIN B COMPLEX CAP [Concomitant]
     Route: 048
  6. REVLIMID [Suspect]
     Dosage: 10-5-25MG
     Route: 048
     Dates: start: 20090601, end: 20110101
  7. COUMADIN [Concomitant]
     Dosage: 2.5 MILLIGRAM
     Route: 048
  8. REVLIMID [Suspect]
     Dosage: 15 MILLIGRAM
     Route: 048
     Dates: start: 20090202, end: 20090101
  9. ALLOPURINOL [Concomitant]
     Dosage: 100 MILLIGRAM
     Route: 048
  10. CALCIUM [Concomitant]
     Dosage: 500 MILLIGRAM
     Route: 048

REACTIONS (1)
  - DEATH [None]
